FAERS Safety Report 16025708 (Version 1)
Quarter: 2019Q1

REPORT INFORMATION
  Report Type: Spontaneous
  Country: DE (occurrence: DE)
  Receive Date: 20190302
  Receipt Date: 20190302
  Transmission Date: 20190418
  Serious: Yes (Death, Hospitalization, Disabling, Other)
  Sender: FDA-Public Use
  Company Number: DE-SUN PHARMACEUTICAL INDUSTRIES LTD-2019RR-200397

PATIENT
  Age: 76 Year
  Sex: Female
  Weight: 65 kg

DRUGS (27)
  1. 5-FU [Suspect]
     Active Substance: FLUOROURACIL
     Dosage: 492 MILLIGRAM
     Route: 041
     Dates: start: 20131210, end: 20140107
  2. 5-FU [Suspect]
     Active Substance: FLUOROURACIL
     Dosage: 738 MILLIGRAM
     Route: 040
     Dates: start: 20140121, end: 20140123
  3. CETUXIMAB. [Concomitant]
     Active Substance: CETUXIMAB
     Indication: PRODUCT USED FOR UNKNOWN INDICATION
     Dosage: DAILY DOSE: 400 MG MILLGRAM(S) EVERY TOTAL ; IN TOTAL
     Route: 065
     Dates: start: 20131210, end: 20131210
  4. DEXAMETHASON [Concomitant]
     Active Substance: DEXAMETHASONE
     Indication: VOMITING
     Dosage: DAILY DOSE: 12 MG MILLGRAM(S) EVERY CYCLICAL ; CYCLICAL
     Route: 048
     Dates: start: 20130912, end: 20131028
  5. FOLINIC ACID [Suspect]
     Active Substance: LEUCOVORIN
     Indication: RECTAL CANCER METASTATIC
     Dosage: DAILY DOSE: 326 MG MILLGRAM(S) EVERY 2 WEEKS
     Route: 042
     Dates: start: 20130913, end: 20131126
  6. 5-FU [Suspect]
     Active Substance: FLUOROURACIL
     Dosage: DAILY DOSE: 246 MG MILLGRAM(S) EVERY 2 WEEKS
     Route: 042
     Dates: start: 20131210, end: 20140122
  7. 5-FU [Suspect]
     Active Substance: FLUOROURACIL
     Dosage: 400 MILLIGRAM
     Route: 041
     Dates: start: 20140108, end: 20140108
  8. 5-FU [Suspect]
     Active Substance: FLUOROURACIL
     Indication: RECTAL CANCER METASTATIC
     Dosage: DAILY DOSE: 600 MG MILLGRAM(S) EVERY 2 WEEKS
     Route: 040
     Dates: start: 20140108, end: 20140109
  9. CAPTOPRIL. [Concomitant]
     Active Substance: CAPTOPRIL
     Indication: HYPERTENSION
     Dosage: DAILY DOSE: 100 MG MILLGRAM(S) EVERY DAYS
     Route: 048
     Dates: start: 1993
  10. OXALIPLATIN. [Suspect]
     Active Substance: OXALIPLATIN
     Indication: RECTAL CANCER METASTATIC
     Dosage: UNK
     Route: 065
     Dates: start: 20131028, end: 20131028
  11. FOLINIC ACID [Suspect]
     Active Substance: LEUCOVORIN
     Dosage: DAILY DOSE: 200 MG MILLGRAM(S) EVERY 2 WEEKS
     Route: 042
     Dates: start: 20130912, end: 20131028
  12. 5-FU [Suspect]
     Active Substance: FLUOROURACIL
     Dosage: DAILY DOSE: 651 MG MILLGRAM(S) EVERY 2 WEEKS
     Route: 041
     Dates: start: 20130912, end: 20131126
  13. 5-FU [Suspect]
     Active Substance: FLUOROURACIL
     Dosage: DAILY DOSE: 2950 MG MILLGRAM(S) EVERY 2 WEEKS
     Route: 040
     Dates: start: 20131210, end: 20131212
  14. 5-FU [Suspect]
     Active Substance: FLUOROURACIL
     Dosage: 492 MILLIGRAM
     Route: 041
     Dates: start: 20140121, end: 20140122
  15. EUTHYROX [Concomitant]
     Active Substance: LEVOTHYROXINE SODIUM
     Indication: HYPOTHYROIDISM
     Dosage: DAILY DOSE: 100 UG MICROGRAM(S) EVERY DAYS
     Route: 065
     Dates: start: 1980
  16. FOLINIC ACID [Suspect]
     Active Substance: LEUCOVORIN
     Dosage: DAILY DOSE: 246 MG MILLGRAM(S) EVERY 2 WEEKS
     Route: 042
     Dates: start: 20131210, end: 20140121
  17. IRINOTECAN [Suspect]
     Active Substance: IRINOTECAN
     Indication: RECTAL CANCER METASTATIC
     Dosage: DAILY DOSE: 221 MG MILLGRAM(S) EVERY 2 WEEKS
     Route: 042
     Dates: start: 20140107, end: 20140121
  18. AVASTIN [Suspect]
     Active Substance: BEVACIZUMAB
     Indication: RECTAL CANCER METASTATIC
     Dosage: 5 MG/KG4 CYCLES IN TOTAL, LAST DOSE PRIOR TO SAE: 28/OCT/2013 ; CYCLICAL
     Route: 042
     Dates: start: 20130912, end: 20131112
  19. FOLINIC ACID [Suspect]
     Active Substance: LEUCOVORIN
     Dosage: 246 MILLIGRAM
     Route: 042
     Dates: start: 20140107, end: 20140108
  20. FOLINIC ACID [Suspect]
     Active Substance: LEUCOVORIN
     Dosage: DAILY DOSE: 570 MG MILLGRAM(S) EVERY 2 WEEKS
     Route: 042
     Dates: start: 20130912, end: 20130912
  21. 5-FU [Suspect]
     Active Substance: FLUOROURACIL
     Dosage: DAILY DOSE: 3908 MG MILLGRAM(S) EVERY 2 WEEKS
     Route: 040
     Dates: start: 20130912, end: 20131128
  22. 5-FU [Suspect]
     Active Substance: FLUOROURACIL
     Dosage: 400 MILLIGRAM
     Route: 040
     Dates: start: 20130912, end: 20131028
  23. 5-FU [Suspect]
     Active Substance: FLUOROURACIL
     Dosage: DURATION OF 24 H () ; CYCLICAL
     Route: 041
     Dates: start: 20130912, end: 20131029
  24. KEVATRIL [Concomitant]
     Active Substance: GRANISETRON HYDROCHLORIDE
     Indication: VOMITING
     Dosage: DAILY DOSE: 3 MG MILLGRAM(S) EVERY CYCLICAL ; CYCLICAL
     Route: 042
     Dates: start: 20130912, end: 20131028
  25. 5-FU [Suspect]
     Active Substance: FLUOROURACIL
     Dosage: 738 MILLIGRAM
     Route: 040
     Dates: start: 20140107, end: 20140108
  26. URACID [Concomitant]
     Indication: PRODUCT USED FOR UNKNOWN INDICATION
     Dosage: DAILY DOSE: 200 MG MILLGRAM(S) EVERY DAYS
     Route: 065
     Dates: start: 20140113
  27. NIFEDIPINE. [Concomitant]
     Active Substance: NIFEDIPINE
     Indication: HYPERTENSION
     Dosage: DOSE: 5-10 MG, FORM: 10 MG, 20 MG
     Route: 048
     Dates: start: 1993

REACTIONS (5)
  - Deep vein thrombosis [Recovering/Resolving]
  - Malignant neoplasm progression [Fatal]
  - Abdominal pain [Recovered/Resolved]
  - Musculoskeletal pain [Recovered/Resolved]
  - Hydronephrosis [Recovered/Resolved]

NARRATIVE: CASE EVENT DATE: 20131112
